FAERS Safety Report 8196284-7 (Version None)
Quarter: 2012Q1

REPORT INFORMATION
  Report Type: 
  Country: None (occurrence: None)
  Receive Date: 20120227
  Receipt Date: 20120227
  Transmission Date: 20120608
  Serious: No
  Sender: FDA-Public Use
  Company Number: None

PATIENT
  Age: 38 Year
  Sex: Female

DRUGS (1)
  1. CREST W/ FLUORIDE [Suspect]

REACTIONS (2)
  - ORAL MUCOSAL EXFOLIATION [None]
  - CHEMICAL INJURY [None]
